FAERS Safety Report 24443745 (Version 2)
Quarter: 2024Q4

REPORT INFORMATION
  Report Type: Report from Study
  Country: CA (occurrence: CA)
  Receive Date: 20241016
  Receipt Date: 20241017
  Transmission Date: 20250114
  Serious: No
  Sender: ROCHE
  Company Number: CA-ROCHE-2212605

PATIENT
  Age: 70 Year
  Sex: Female

DRUGS (24)
  1. RITUXAN [Suspect]
     Active Substance: RITUXIMAB
     Indication: Rheumatoid arthritis
     Dosage: FREQUENCY TEXT:DAY 1 AND DAY 15
     Route: 041
     Dates: start: 20180430
  2. RITUXAN [Suspect]
     Active Substance: RITUXIMAB
     Indication: Pulmonary fibrosis
     Dosage: OUTSIDE RPAP
     Route: 041
     Dates: start: 2016, end: 2018
  3. RITUXAN [Suspect]
     Active Substance: RITUXIMAB
     Route: 041
     Dates: start: 20200720
  4. RITUXAN [Suspect]
     Active Substance: RITUXIMAB
     Route: 041
  5. RITUXAN [Suspect]
     Active Substance: RITUXIMAB
     Route: 041
  6. RITUXAN [Suspect]
     Active Substance: RITUXIMAB
     Route: 041
  7. RITUXAN [Suspect]
     Active Substance: RITUXIMAB
     Route: 041
  8. RITUXAN [Suspect]
     Active Substance: RITUXIMAB
     Route: 041
  9. RITUXAN [Suspect]
     Active Substance: RITUXIMAB
     Route: 041
  10. RITUXAN [Suspect]
     Active Substance: RITUXIMAB
     Route: 041
  11. RITUXAN [Suspect]
     Active Substance: RITUXIMAB
     Route: 041
  12. RITUXAN [Suspect]
     Active Substance: RITUXIMAB
     Route: 041
  13. TORADOL [Suspect]
     Active Substance: KETOROLAC TROMETHAMINE
     Indication: Product used for unknown indication
     Route: 065
  14. LOSEC [Concomitant]
     Active Substance: OMEPRAZOLE
     Indication: Product used for unknown indication
     Dosage: ONGOING
  15. CETIRIZINE HYDROCHLORIDE [Concomitant]
     Active Substance: CETIRIZINE HYDROCHLORIDE
  16. PLAQUENIL [Concomitant]
     Active Substance: HYDROXYCHLOROQUINE SULFATE
     Indication: Product used for unknown indication
     Dosage: ONGOING
  17. SYNTHROID [Concomitant]
     Active Substance: LEVOTHYROXINE SODIUM
     Indication: Product used for unknown indication
     Dosage: ONGOING, 5 OUT OF 7 DAYS OF THE WEEK
  18. SYNTHROID [Concomitant]
     Active Substance: LEVOTHYROXINE SODIUM
     Dosage: ONGOING, 2 OUT OF 7 DAYS OF THE WEEK
  19. DIPHENHYDRAMINE HYDROCHLORIDE [Concomitant]
     Active Substance: DIPHENHYDRAMINE HYDROCHLORIDE
     Indication: Premedication
     Route: 048
     Dates: start: 20180430
  20. ACETAMINOPHEN [Concomitant]
     Active Substance: ACETAMINOPHEN
     Indication: Premedication
     Route: 048
     Dates: start: 20180430
  21. METHYLPREDNISOLONE [Concomitant]
     Active Substance: METHYLPREDNISOLONE
     Indication: Premedication
     Route: 042
     Dates: start: 20180430
  22. TYLENOL [Concomitant]
     Active Substance: ACETAMINOPHEN
     Indication: Premedication
     Dosage: ONGOING
     Route: 048
     Dates: start: 20180430
  23. SOLU-MEDROL [Concomitant]
     Active Substance: METHYLPREDNISOLONE SODIUM SUCCINATE
     Indication: Premedication
     Dosage: ONGOING
     Route: 042
     Dates: start: 20180430
  24. CELEBREX [Concomitant]
     Active Substance: CELECOXIB

REACTIONS (12)
  - Blood pressure systolic increased [Unknown]
  - Blood pressure systolic abnormal [Unknown]
  - Oxygen saturation decreased [Unknown]
  - Body temperature decreased [Unknown]
  - Blood pressure increased [Unknown]
  - Peripheral swelling [Unknown]
  - Nausea [Unknown]
  - Drug hypersensitivity [Unknown]
  - Intercepted medication error [Unknown]
  - Erythema [Recovered/Resolved]
  - Tenderness [Recovered/Resolved]
  - Pain in extremity [Recovered/Resolved]

NARRATIVE: CASE EVENT DATE: 20181105
